FAERS Safety Report 12536080 (Version 1)
Quarter: 2016Q3

REPORT INFORMATION
  Report Type: Report from Study
  Country: CA (occurrence: CA)
  Receive Date: 20160707
  Receipt Date: 20160707
  Transmission Date: 20161109
  Serious: Yes (Death, Other)
  Sender: FDA-Public Use
  Company Number: CA-BAYER-2014-077723

PATIENT
  Age: 74 Year
  Sex: Female
  Weight: 80.27 kg

DRUGS (8)
  1. FUROSEMIDE. [Concomitant]
     Active Substance: FUROSEMIDE
  2. RAMIPRIL. [Concomitant]
     Active Substance: RAMIPRIL
  3. AMIODARONE [Concomitant]
     Active Substance: AMIODARONE
  4. ESCITALOPRAM [Concomitant]
     Active Substance: ESCITALOPRAM OXALATE
  5. WARFARIN [Concomitant]
     Active Substance: WARFARIN
  6. HYDROCHLOROTHIAZIDE. [Concomitant]
     Active Substance: HYDROCHLOROTHIAZIDE
  7. ADEMPAS [Suspect]
     Active Substance: RIOCIGUAT
     Indication: PULMONARY HYPERTENSION
     Dosage: 1.5 MG, TID
     Route: 048
     Dates: start: 20140414
  8. ADEMPAS [Suspect]
     Active Substance: RIOCIGUAT
     Indication: PULMONARY HYPERTENSION
     Dosage: 2 MG, TID
     Route: 048
     Dates: end: 201409

REACTIONS (6)
  - Musculoskeletal stiffness [None]
  - Musculoskeletal stiffness [Recovered/Resolved]
  - Pulmonary thrombosis [None]
  - Death [Fatal]
  - Haematoma [None]
  - Influenza [Recovered/Resolved]

NARRATIVE: CASE EVENT DATE: 20140522
